FAERS Safety Report 4781009-5 (Version None)
Quarter: 2005Q3

REPORT INFORMATION
  Report Type: 
  Country: None (occurrence: None)
  Receive Date: 20050928
  Receipt Date: 20050118
  Transmission Date: 20060218
  Serious: Yes (Other)
  Sender: FDA-Public Use
  Company Number: PHBS2005LV01180

PATIENT
  Age: 25 Year
  Sex: Female
  Weight: 56 kg

DRUGS (2)
  1. ELIDEL [Suspect]
     Indication: DERMATITIS ATOPIC
     Dosage: UNK, BID
     Route: 061
     Dates: start: 20041222
  2. ELIDEL [Suspect]
     Dosage: INTERMITTENT (DURING 2-3 D TILL DELIVERY)

REACTIONS (3)
  - CAESAREAN SECTION [None]
  - DRUG EXPOSURE DURING PREGNANCY [None]
  - NORMAL NEWBORN [None]
